FAERS Safety Report 5017545-6 (Version None)
Quarter: 2006Q2

REPORT INFORMATION
  Report Type: 
  Country: None (occurrence: None)
  Receive Date: 20060601
  Receipt Date: 20060601
  Transmission Date: 20061013
  Serious: No
  Sender: FDA-Public Use
  Company Number: None

PATIENT
  Age: 68 Year
  Sex: Female
  Weight: 58.9676 kg

DRUGS (1)
  1. LIPITOR [Suspect]
     Indication: BLOOD CHOLESTEROL INCREASED
     Dosage: 20 MG 1 A DAY PO
     Route: 048
     Dates: start: 20060301, end: 20060531

REACTIONS (2)
  - DRUG DISPENSING ERROR [None]
  - LOW DENSITY LIPOPROTEIN INCREASED [None]
